FAERS Safety Report 8759115 (Version 2)
Quarter: 2012Q4

REPORT INFORMATION
  Report Type: 
  Country: US (occurrence: US)
  Receive Date: 20120829
  Receipt Date: 20121128
  Transmission Date: 20130627
  Serious: Yes (Other)
  Sender: FDA-Public Use
  Company Number: PHEH2012US016765

PATIENT
  Sex: Female

DRUGS (1)
  1. RECLAST [Suspect]
     Dosage: UNK UKN, UNK
     Route: 042

REACTIONS (8)
  - Paralysis [Unknown]
  - Oedema [Unknown]
  - Muscle spasms [Unknown]
  - Rash [Unknown]
  - Neck pain [Unknown]
  - Fatigue [Unknown]
  - Influenza like illness [Unknown]
  - Back pain [Unknown]
